FAERS Safety Report 22115215 (Version 1)
Quarter: 2023Q1

REPORT INFORMATION
  Report Type: Spontaneous
  Country: DE (occurrence: DE)
  Receive Date: 20230320
  Receipt Date: 20230320
  Transmission Date: 20230417
  Serious: No
  Sender: FDA-Public Use
  Company Number: DE-PFIZER INC-PV202300049804

PATIENT
  Age: 43 Year
  Sex: Male

DRUGS (1)
  1. PAXLOVID [Suspect]
     Active Substance: NIRMATRELVIR\RITONAVIR
     Indication: COVID-19 treatment
     Dosage: 3 DF, 2X/DAY(3-0-3)
     Dates: start: 20230107, end: 20230109

REACTIONS (2)
  - Product prescribing error [Unknown]
  - Intercepted product dispensing error [Unknown]
